FAERS Safety Report 18015785 (Version 1)
Quarter: 2020Q3

REPORT INFORMATION
  Report Type: Report from Study
  Country: IT (occurrence: IT)
  Receive Date: 20200713
  Receipt Date: 20200713
  Transmission Date: 20201103
  Serious: Yes (Hospitalization, Other)
  Sender: FDA-Public Use
  Company Number: IT-MYLANLABS-2020M1063497

PATIENT
  Age: 30 Year
  Sex: Female

DRUGS (5)
  1. MUTABON A [Suspect]
     Active Substance: AMITRIPTYLINE HYDROCHLORIDE\PERPHENAZINE
     Indication: INTENTIONAL SELF-INJURY
     Dosage: 10 DOSAGE FORM, ONCE
     Route: 048
     Dates: start: 20200618, end: 20200618
  2. ZOLOFT [Concomitant]
     Active Substance: SERTRALINE HYDROCHLORIDE
     Dosage: 1 DOSAGE FORM
     Route: 048
  3. PAROXETINE. [Suspect]
     Active Substance: PAROXETINE
     Indication: INTENTIONAL SELF-INJURY
     Dosage: 40 MILLIGRAM, ONCE
     Route: 048
     Dates: start: 20200618, end: 20200618
  4. LAMOTRIGINE. [Concomitant]
     Active Substance: LAMOTRIGINE
     Dosage: 100 MILLIGRAM
     Route: 048
  5. XANAX [Suspect]
     Active Substance: ALPRAZOLAM
     Indication: INTENTIONAL SELF-INJURY
     Dosage: 10 DOSAGE FORM, ONCE
     Route: 048
     Dates: start: 20200618, end: 20200618

REACTIONS (3)
  - Sopor [Recovering/Resolving]
  - Intentional product misuse [Unknown]
  - Drug abuse [Unknown]

NARRATIVE: CASE EVENT DATE: 20200618
